FAERS Safety Report 11621036 (Version 1)
Quarter: 2015Q4

REPORT INFORMATION
  Report Type: Spontaneous
  Country: US (occurrence: US)
  Receive Date: 20151012
  Receipt Date: 20151012
  Transmission Date: 20160304
  Serious: Yes (Hospitalization)
  Sender: FDA-Public Use
  Company Number: US-DSJP-DSU-2015-120836

PATIENT

DRUGS (4)
  1. CARVEDILOL. [Concomitant]
     Active Substance: CARVEDILOL
     Indication: PRODUCT USED FOR UNKNOWN INDICATION
     Dosage: 12.5 MG, BID
     Dates: start: 2009
  2. HYDROCHLOROTHIAZIDE. [Concomitant]
     Active Substance: HYDROCHLOROTHIAZIDE
     Indication: PRODUCT USED FOR UNKNOWN INDICATION
     Dosage: 25 MG, QD
     Dates: start: 2000
  3. BENICAR HCT [Suspect]
     Active Substance: HYDROCHLOROTHIAZIDE\OLMESARTAN MEDOXOMIL
     Indication: HYPERTENSION
     Dosage: 40/25 MG, QD
     Dates: start: 20050825, end: 20130725
  4. LISINOPRIL. [Concomitant]
     Active Substance: LISINOPRIL
     Indication: PRODUCT USED FOR UNKNOWN INDICATION
     Dosage: 40 MG, QD
     Dates: start: 2009

REACTIONS (15)
  - Dizziness [Unknown]
  - Fear of eating [Unknown]
  - Abdominal distension [Unknown]
  - Malabsorption [Unknown]
  - Cholecystitis [Recovered/Resolved]
  - Haemorrhoids [Unknown]
  - Diverticulitis intestinal haemorrhagic [Recovered/Resolved]
  - Decreased appetite [Recovered/Resolved]
  - Umbilical hernia [Unknown]
  - Large intestine polyp [Unknown]
  - Chronic kidney disease [Unknown]
  - Rectal haemorrhage [Unknown]
  - Gastrointestinal haemorrhage [Unknown]
  - Colitis ischaemic [Unknown]
  - Rash pruritic [Unknown]

NARRATIVE: CASE EVENT DATE: 20110125
